FAERS Safety Report 4783600-9 (Version None)
Quarter: 2005Q3

REPORT INFORMATION
  Report Type: 
  Country: None (occurrence: None)
  Receive Date: 20050929
  Receipt Date: 20050919
  Transmission Date: 20060218
  Serious: Yes (Death)
  Sender: FDA-Public Use
  Company Number: US-JNJFOC-20050904887

PATIENT
  Sex: Male

DRUGS (10)
  1. DURAGESIC-100 [Suspect]
     Route: 062
  2. ATENOLOL [Concomitant]
  3. ZOLOFT [Concomitant]
  4. TRAZEDONE [Concomitant]
  5. DOXYCYCLINE [Concomitant]
  6. LIPITOR [Concomitant]
  7. HYDROCODONE [Concomitant]
  8. REMERON [Concomitant]
  9. METHADONE HCL [Concomitant]
  10. PHENERGAN [Concomitant]

REACTIONS (2)
  - DEATH [None]
  - LUNG NEOPLASM MALIGNANT [None]
